FAERS Safety Report 10365161 (Version 2)
Quarter: 2014Q3

REPORT INFORMATION
  Report Type: Spontaneous
  Country: DE (occurrence: DE)
  Receive Date: 20140806
  Receipt Date: 20140825
  Transmission Date: 20150326
  Serious: Yes (Other)
  Sender: FDA-Public Use
  Company Number: PHHY2014DE091825

PATIENT
  Age: 87 Year
  Sex: Female
  Weight: 70 kg

DRUGS (8)
  1. LOCOL [Concomitant]
     Active Substance: FLUVASTATIN SODIUM
     Dosage: 0.5 DF, QD
     Dates: start: 20030707
  2. TORASEMID [Concomitant]
     Active Substance: TORSEMIDE
     Dosage: 0.5 DF, QD
     Dates: start: 20140109
  3. MARCUMAR [Suspect]
     Active Substance: PHENPROCOUMON
     Indication: STICKY PLATELET SYNDROME
     Dosage: UNK UKN, UNK
     Dates: start: 200212
  4. SPIRIVA [Concomitant]
     Active Substance: TIOTROPIUM BROMIDE MONOHYDRATE
     Dosage: 1 DF, QD
     Dates: start: 2013
  5. ULTIBRO BREEZHALER [Suspect]
     Active Substance: GLYCOPYRRONIUM\INDACATEROL
     Indication: CHRONIC OBSTRUCTIVE PULMONARY DISEASE
     Dosage: UNK UKN, UNK
     Dates: start: 20140424, end: 20140718
  6. FALITHROM [Interacting]
     Active Substance: PHENPROCOUMON
     Dosage: UNK UKN, UNK
  7. VERAPAMIL [Concomitant]
     Active Substance: VERAPAMIL HYDROCHLORIDE
     Dosage: 2 DF, QD
     Dates: start: 20030714
  8. MARCUMAR [Suspect]
     Active Substance: PHENPROCOUMON
     Dosage: UNK UKN, UNK

REACTIONS (3)
  - International normalised ratio increased [Recovered/Resolved]
  - Drug interaction [Unknown]
  - International normalised ratio decreased [Recovered/Resolved]

NARRATIVE: CASE EVENT DATE: 20140623
